FAERS Safety Report 7238326-9 (Version None)
Quarter: 2011Q1

REPORT INFORMATION
  Report Type: 
  Country: None (occurrence: None)
  Receive Date: 20110121
  Receipt Date: 20110112
  Transmission Date: 20110831
  Serious: Yes (Hospitalization, Other)
  Sender: FDA-Public Use
  Company Number: US-JNJFOC-20110104800

PATIENT
  Sex: Female
  Weight: 77.11 kg

DRUGS (4)
  1. FENTANYL-100 [Suspect]
     Route: 062
  2. FENTANYL-100 [Suspect]
     Indication: ARTHRALGIA
     Route: 062
  3. UNKNOWN MEDICATION [Concomitant]
     Indication: NEUROPATHY PERIPHERAL
     Route: 048
  4. FENTANYL-100 [Suspect]
     Indication: ARTHRALGIA
     Route: 062

REACTIONS (8)
  - COGNITIVE DISORDER [None]
  - AMNESIA [None]
  - PRODUCT ADHESION ISSUE [None]
  - SURGERY [None]
  - HOSPITALISATION [None]
  - CEREBROVASCULAR ACCIDENT [None]
  - THROAT IRRITATION [None]
  - DRUG INEFFECTIVE [None]
